FAERS Safety Report 14677924 (Version 1)
Quarter: 2018Q1

REPORT INFORMATION
  Report Type: Spontaneous
  Country: US (occurrence: US)
  Receive Date: 20180326
  Receipt Date: 20180326
  Transmission Date: 20180509
  Serious: No
  Sender: FDA-Public Use
  Company Number: US-LUPIN PHARMACEUTICALS INC.-2018-01186

PATIENT
  Age: 90 Year
  Sex: Female
  Weight: 62 kg

DRUGS (7)
  1. HYDROCODONE BITARTRATE AND ACETAMINOPHEN TABLETS USP, 5 MG/325 MG [Suspect]
     Active Substance: ACETAMINOPHEN\HYDROCODONE BITARTRATE
     Indication: BACK PAIN
     Dosage: 5 MG/325 MG, Q8H
     Route: 048
     Dates: start: 20180110
  2. BUMEX [Concomitant]
     Active Substance: BUMETANIDE
     Indication: FLUID RETENTION
  3. ELIQUIS [Concomitant]
     Active Substance: APIXABAN
     Indication: CARDIAC DISORDER
     Dosage: UNK
     Route: 065
  4. LIPITOR [Concomitant]
     Active Substance: ATORVASTATIN CALCIUM
     Indication: BLOOD CHOLESTEROL ABNORMAL
     Dosage: UNK
     Route: 065
  5. LABETALOL [Concomitant]
     Active Substance: LABETALOL\LABETALOL HYDROCHLORIDE
     Indication: ATRIAL FIBRILLATION
     Dosage: UNK
     Route: 065
  6. SYNTHROID [Concomitant]
     Active Substance: LEVOTHYROXINE SODIUM
     Indication: THYROID DISORDER
     Dosage: UNK
     Route: 065
  7. PREDNISONE. [Concomitant]
     Active Substance: PREDNISONE
     Indication: FLUID RETENTION
     Dosage: UNK
     Route: 065

REACTIONS (2)
  - Product formulation issue [Not Recovered/Not Resolved]
  - Drug effect variable [Not Recovered/Not Resolved]

NARRATIVE: CASE EVENT DATE: 20180110
